FAERS Safety Report 10133246 (Version 1)
Quarter: 2014Q2

REPORT INFORMATION
  Report Type: Spontaneous
  Country: EG (occurrence: EG)
  Receive Date: 20140428
  Receipt Date: 20140428
  Transmission Date: 20141212
  Serious: Yes (Other)
  Sender: FDA-Public Use
  Company Number: PHHY2014EG047205

PATIENT
  Sex: Female

DRUGS (10)
  1. TAREG [Suspect]
     Dosage: (80 UNKNOWN UNIT)
     Route: 048
  2. ASPIRIN [Concomitant]
     Dosage: UNK UKN, UNK
     Route: 048
  3. CLOPIDOGREL BISULFATE [Concomitant]
     Dosage: UNK UKN, UNK
     Route: 048
  4. FUROSEMIDE W/SPIRONOLACTONE [Concomitant]
     Dosage: 100 MG, UNK
     Route: 048
  5. THYROXINE SODIUM [Concomitant]
     Dosage: UNK UKN, UNK
  6. ATORVASTATIN [Concomitant]
     Dosage: UNK UKN, UNK
     Route: 048
  7. RANITIDINE [Concomitant]
     Dosage: UNK UKN, UNK
  8. FELODIPINE W/METOPROLOL SUCCINATE [Concomitant]
     Dosage: UNK UKN, UNK
  9. IVABRADINE [Concomitant]
     Dosage: (7.5 UNIT NOT SPECIFIED)
     Route: 048
  10. SITAGLIPTIN METFORMIN [Concomitant]
     Dosage: (METF 1000 UKN, VILD 50 UKN), UNK

REACTIONS (1)
  - Heart rate irregular [Not Recovered/Not Resolved]
